FAERS Safety Report 4844611-8 (Version None)
Quarter: 2005Q4

REPORT INFORMATION
  Report Type: 
  Country: None (occurrence: None)
  Receive Date: 20051130
  Receipt Date: 20051130
  Transmission Date: 20060501
  Serious: Yes (Other)
  Sender: FDA-Public Use
  Company Number: None

PATIENT
  Age: 26 Year
  Sex: Female
  Weight: 67.1324 kg

DRUGS (2)
  1. LOW-OGESTREL-21 [Suspect]
     Indication: CONTRACEPTION
     Dosage: DAILY
  2. YASMIN [Suspect]
     Indication: CONTRACEPTION
     Dosage: DAILY

REACTIONS (1)
  - DYSFUNCTIONAL UTERINE BLEEDING [None]
